FAERS Safety Report 7585680-4 (Version None)
Quarter: 2011Q2

REPORT INFORMATION
  Report Type: 
  Country: None (occurrence: None)
  Receive Date: 20110624
  Receipt Date: 20110613
  Transmission Date: 20111010
  Serious: Yes (Hospitalization)
  Sender: FDA-Public Use
  Company Number: MX-1186702

PATIENT
  Age: 83 Year
  Sex: Female
  Weight: 63 kg

DRUGS (6)
  1. BSS [Suspect]
     Dosage: INTRAOCULAR
     Route: 031
     Dates: start: 20110526, end: 20110526
  2. ENALAPRIL MALEATE [Concomitant]
  3. PREDNISONE [Concomitant]
  4. BSS [Suspect]
     Dates: start: 20110526, end: 20110526
  5. AMBROXOL [Concomitant]
  6. METFORMIN HCL [Concomitant]

REACTIONS (1)
  - ENDOPHTHALMITIS [None]
